FAERS Safety Report 19084556 (Version 1)
Quarter: 2021Q2

REPORT INFORMATION
  Report Type: Spontaneous
  Country: US (occurrence: US)
  Receive Date: 20210401
  Receipt Date: 20210401
  Transmission Date: 20210717
  Serious: No
  Sender: FDA-Public Use
  Company Number: US-IBSA PHARMA-2020-IBS-00758

PATIENT
  Age: 77 Year
  Weight: 92 kg

DRUGS (2)
  1. SALONPAS LIDOCAINE [Concomitant]
     Dosage: UNK
     Route: 061
  2. FLECTOR [Suspect]
     Active Substance: DICLOFENAC EPOLAMINE
     Indication: BACK PAIN
     Dosage: PLACES PATCH ON LOWER BACK IN THE MORNING FOR 12 HOURS
     Route: 061
     Dates: start: 202003

REACTIONS (1)
  - Discomfort [Unknown]

NARRATIVE: CASE EVENT DATE: 202003
